FAERS Safety Report 9543659 (Version 1)
Quarter: 2013Q3

REPORT INFORMATION
  Report Type: Spontaneous
  Country: MX (occurrence: MX)
  Receive Date: 20130923
  Receipt Date: 20130923
  Transmission Date: 20140515
  Serious: Yes (Death, Hospitalization, Disabling, Other)
  Sender: FDA-Public Use
  Company Number: MX-ASTRAZENECA-2013SE69337

PATIENT
  Age: 28013 Day
  Sex: Female

DRUGS (26)
  1. CLONAZEPAM [Suspect]
     Route: 048
     Dates: start: 2007, end: 20130527
  2. CLONAZEPAM [Suspect]
     Route: 048
     Dates: start: 20130525, end: 20130525
  3. PULMICORT [Suspect]
     Indication: PNEUMONIA
     Route: 055
     Dates: start: 20130605, end: 20130613
  4. PULMICORT [Suspect]
     Indication: CHRONIC OBSTRUCTIVE PULMONARY DISEASE
     Route: 055
     Dates: start: 20130605, end: 20130613
  5. PULMICORT [Suspect]
     Indication: ELECTROLYTE IMBALANCE
     Route: 055
     Dates: start: 20130605, end: 20130613
  6. CEFTRIAXONE [Concomitant]
     Indication: PNEUMONIA
     Route: 042
     Dates: start: 20130605
  7. CEFTRIAXONE [Concomitant]
     Indication: CHRONIC OBSTRUCTIVE PULMONARY DISEASE
     Route: 042
     Dates: start: 20130605
  8. CEFTRIAXONE [Concomitant]
     Indication: ELECTROLYTE IMBALANCE
     Route: 042
     Dates: start: 20130605
  9. MOXIFLOXACIN [Concomitant]
     Indication: PNEUMONIA
     Route: 042
     Dates: start: 20130605
  10. MOXIFLOXACIN [Concomitant]
     Indication: CHRONIC OBSTRUCTIVE PULMONARY DISEASE
     Route: 042
     Dates: start: 20130605
  11. MOXIFLOXACIN [Concomitant]
     Indication: ELECTROLYTE IMBALANCE
     Route: 042
     Dates: start: 20130605
  12. IPRATROPIUM BROMIDE - SALBUTAMOL [Concomitant]
     Indication: PNEUMONIA
     Route: 055
     Dates: start: 20130605
  13. IPRATROPIUM BROMIDE - SALBUTAMOL [Concomitant]
     Indication: CHRONIC OBSTRUCTIVE PULMONARY DISEASE
     Route: 055
     Dates: start: 20130605
  14. IPRATROPIUM BROMIDE - SALBUTAMOL [Concomitant]
     Indication: ELECTROLYTE IMBALANCE
     Route: 055
     Dates: start: 20130605
  15. PREDNISONE [Concomitant]
     Indication: PNEUMONIA
     Route: 065
     Dates: start: 20130605
  16. PREDNISONE [Concomitant]
     Indication: CHRONIC OBSTRUCTIVE PULMONARY DISEASE
     Route: 065
     Dates: start: 20130605
  17. PREDNISONE [Concomitant]
     Indication: ELECTROLYTE IMBALANCE
     Route: 065
     Dates: start: 20130605
  18. TIOTROPIUM BROMIDE [Concomitant]
     Indication: PNEUMONIA
     Dosage: 1 DF EVERY 12 HOURS, 2 INHALATIONS PER DAY
     Route: 055
     Dates: start: 20130613
  19. TIOTROPIUM BROMIDE [Concomitant]
     Indication: CHRONIC OBSTRUCTIVE PULMONARY DISEASE
     Dosage: 1 DF EVERY 12 HOURS, 2 INHALATIONS PER DAY
     Route: 055
     Dates: start: 20130613
  20. TIOTROPIUM BROMIDE [Concomitant]
     Indication: ELECTROLYTE IMBALANCE
     Dosage: 1 DF EVERY 12 HOURS, 2 INHALATIONS PER DAY
     Route: 055
     Dates: start: 20130613
  21. SODIUM AND POTASIUM SOLUTION [Concomitant]
     Indication: PNEUMONIA
     Dosage: SOLUTION FOR 24 HOURS
     Route: 042
     Dates: start: 20130605
  22. SODIUM AND POTASIUM SOLUTION [Concomitant]
     Indication: CHRONIC OBSTRUCTIVE PULMONARY DISEASE
     Dosage: SOLUTION FOR 24 HOURS
     Route: 042
     Dates: start: 20130605
  23. SODIUM AND POTASIUM SOLUTION [Concomitant]
     Indication: ELECTROLYTE IMBALANCE
     Dosage: SOLUTION FOR 24 HOURS
     Route: 042
     Dates: start: 20130605
  24. LEVOFLOXACIN [Concomitant]
     Indication: PNEUMONIA
     Route: 048
     Dates: start: 20130613, end: 20130618
  25. LEVOFLOXACIN [Concomitant]
     Indication: CHRONIC OBSTRUCTIVE PULMONARY DISEASE
     Route: 048
     Dates: start: 20130613, end: 20130618
  26. LEVOFLOXACIN [Concomitant]
     Indication: ELECTROLYTE IMBALANCE
     Route: 048
     Dates: start: 20130613, end: 20130618

REACTIONS (23)
  - Pneumonia [Fatal]
  - Cardio-respiratory arrest [Fatal]
  - Fall [Unknown]
  - Fracture displacement [Not Recovered/Not Resolved]
  - Chronic obstructive pulmonary disease [Recovered/Resolved]
  - Electrolyte imbalance [Recovered/Resolved]
  - Bronchiolitis [Unknown]
  - Lung cyst [Unknown]
  - Hypercapnia [Unknown]
  - Rib deformity [Unknown]
  - Air embolism [Unknown]
  - Arrhythmia [Recovered/Resolved]
  - Respiratory disorder [Unknown]
  - Humerus fracture [Unknown]
  - Rib fracture [Unknown]
  - Hypersomnia [Unknown]
  - Unresponsive to stimuli [Unknown]
  - Incoherent [Unknown]
  - Disorientation [Unknown]
  - Tachycardia [Unknown]
  - Rib fracture [Unknown]
  - Hyperthyroidism [Unknown]
  - Parathyroid disorder [Unknown]
